FAERS Safety Report 6438110-X (Version None)
Quarter: 2009Q4

REPORT INFORMATION
  Report Type: 
  Country: None (occurrence: None)
  Receive Date: 20091112
  Receipt Date: 20091110
  Transmission Date: 20100525
  Serious: Yes (Hospitalization)
  Sender: FDA-Public Use
  Company Number: US-BRISTOL-MYERS SQUIBB COMPANY-14851141

PATIENT
  Age: 65 Year
  Sex: Female

DRUGS (3)
  1. COUMADIN [Suspect]
     Indication: THROMBOSIS
     Dates: start: 20090701, end: 20090708
  2. LOVENOX [Suspect]
     Indication: THROMBOSIS
     Dosage: 01JUL09-08JUL09 16JUL09-19JUL09
     Dates: start: 20090701, end: 20090720
  3. CHEMOTHERAPY [Suspect]
     Dates: start: 20090101, end: 20090101

REACTIONS (2)
  - INFECTION [None]
  - INTERNATIONAL NORMALISED RATIO INCREASED [None]
